FAERS Safety Report 6804105-7 (Version None)
Quarter: 2010Q2

REPORT INFORMATION
  Report Type: 
  Country: None (occurrence: None)
  Receive Date: 20100628
  Receipt Date: 20070723
  Transmission Date: 20101027
  Serious: No
  Sender: FDA-Public Use
  Company Number: US-PFIZER INC-2006100530

PATIENT
  Sex: Female
  Weight: 73.94 kg

DRUGS (9)
  1. GEODON [Suspect]
     Indication: BIPOLAR DISORDER
     Route: 065
     Dates: start: 20060804
  2. CARBAMAZEPINE [Concomitant]
     Route: 065
  3. TOPIRAMATE [Concomitant]
     Route: 065
  4. ALL OTHER THERAPEUTIC PRODUCTS [Concomitant]
     Route: 065
  5. MUCINEX [Concomitant]
     Route: 065
  6. MONTELUKAST [Concomitant]
     Route: 065
  7. ALBUTEROL [Concomitant]
     Route: 065
  8. ALL OTHER THERAPEUTIC PRODUCTS [Concomitant]
     Route: 065
  9. KLONOPIN [Concomitant]
     Route: 065

REACTIONS (5)
  - CARDIAC DISORDER [None]
  - FATIGUE [None]
  - HYPERHIDROSIS [None]
  - MYALGIA [None]
  - RESTLESSNESS [None]
